FAERS Safety Report 12239360 (Version 2)
Quarter: 2016Q2

REPORT INFORMATION
  Report Type: Spontaneous
  Country: FR (occurrence: FR)
  Receive Date: 20160405
  Receipt Date: 20160406
  Transmission Date: 20160815
  Serious: Yes (Other)
  Sender: FDA-Public Use
  Company Number: FR-TEVA-648755ISR

PATIENT
  Sex: Male

DRUGS (3)
  1. ATORVASTATINE TEVA SANTE 10 MG [Suspect]
     Active Substance: ATORVASTATIN
     Dates: start: 201309, end: 20150815
  2. METFORMINE TEVA 850 MG [Suspect]
     Active Substance: METFORMIN HYDROCHLORIDE
     Dosage: 2 DOSAGE FORMS DAILY;
     Dates: start: 20090623
  3. ATORVASTATINE TEVA SANTE 40 MG [Suspect]
     Active Substance: ATORVASTATIN
     Dates: end: 201309

REACTIONS (3)
  - Colorectal cancer [Unknown]
  - Metastases to liver [Unknown]
  - Metastases to lung [Unknown]
